FAERS Safety Report 8590866-6 (Version None)
Quarter: 2012Q3

REPORT INFORMATION
  Report Type: 
  Country: None (occurrence: None)
  Receive Date: 20120813
  Receipt Date: 20120806
  Transmission Date: 20120928
  Serious: Yes (Other)
  Sender: FDA-Public Use
  Company Number: PHHY2012GB067818

PATIENT
  Age: 68 Year
  Sex: Female

DRUGS (8)
  1. CARVEDILOL [Suspect]
     Dates: start: 20120524
  2. CLOPIDOGREL [Concomitant]
     Dosage: 75 MG, QD
     Route: 048
  3. BISOPROLOL FUMARATE [Suspect]
     Dates: start: 20120723
  4. LOSARTAN POTASSIUM [Concomitant]
     Dosage: 12.5 MG, QD
  5. BISOPROLOL FUMARATE [Suspect]
     Dates: end: 20120524
  6. TREDAPTIVE [Concomitant]
     Route: 048
  7. BISOPROLOL FUMARATE [Suspect]
     Indication: MYOCARDIAL INFARCTION
     Dosage: 1.25 MG, QD
     Dates: end: 20120524
  8. ASPIRIN [Concomitant]
     Dosage: 75 MG, QD

REACTIONS (6)
  - WEIGHT INCREASED [None]
  - WAIST CIRCUMFERENCE INCREASED [None]
  - RENAL PAIN [None]
  - URINARY TRACT INFECTION [None]
  - SLEEP DISORDER [None]
  - FATIGUE [None]
